FAERS Safety Report 5711048-9 (Version None)
Quarter: 2008Q2

REPORT INFORMATION
  Report Type: 
  Country: None (occurrence: None)
  Receive Date: 20080421
  Receipt Date: 20080410
  Transmission Date: 20081010
  Serious: Yes (Other)
  Sender: FDA-Public Use
  Company Number: US-ROCHE-558101

PATIENT
  Sex: Female
  Weight: 71.7 kg

DRUGS (6)
  1. BONIVA [Suspect]
     Indication: OSTEOPENIA
     Route: 048
     Dates: start: 20070401
  2. HYZAAR [Concomitant]
     Indication: HYPERTENSION
  3. HYZAAR [Concomitant]
  4. CLONIDINE HCL [Concomitant]
     Indication: HYPERTENSION
  5. CADUET [Concomitant]
     Indication: HYPERTENSION
     Dosage: OTHER INDICATION: CHOLESTEROL
  6. CADUET [Concomitant]
     Dosage: OTHER INDICATION: CHOLESTEROL

REACTIONS (2)
  - HEADACHE [None]
  - LUNG NEOPLASM MALIGNANT [None]
